FAERS Safety Report 5331814-1 (Version None)
Quarter: 2007Q2

REPORT INFORMATION
  Report Type: 
  Country: None (occurrence: None)
  Receive Date: 20070518
  Receipt Date: 20070507
  Transmission Date: 20071010
  Serious: Yes (Death, Hospitalization, Other)
  Sender: FDA-Public Use
  Company Number: 2007-00278

PATIENT
  Age: 58 Year
  Sex: Female

DRUGS (10)
  1. VELCADE [Suspect]
     Indication: MULTIPLE MYELOMA
     Dosage: 1.30 MG/M2
     Dates: start: 20061130, end: 20070119
  2. BAKTAR (SULFAMETHOXAZOLE, TRIMETHORPIM) [Concomitant]
  3. MAGNESIUM OXIDE (MAGNESIUM OXIDE) [Concomitant]
  4. FENTANYL [Concomitant]
  5. EBRANTIL (URAPIDIL) [Concomitant]
  6. BESACOLIN (BETHANECHOL CHLORIDE) [Concomitant]
  7. RED BLOOD CELLS [Concomitant]
  8. MUCOSOLVAN (AMBROXOL HYDROCHLORIDE) [Concomitant]
  9. ASTOMIN (DIMEMORFAN PHOSPHATE) [Concomitant]
  10. LAC B (LACTOBACILLUS BIFIDUS, LYOPHILIZED) [Concomitant]

REACTIONS (10)
  - BLOOD URIC ACID INCREASED [None]
  - BRONCHITIS [None]
  - DIARRHOEA [None]
  - DISCOMFORT [None]
  - HAEMOGLOBIN DECREASED [None]
  - INJURY ASPHYXIATION [None]
  - OBSTRUCTIVE AIRWAYS DISORDER [None]
  - PRODUCTIVE COUGH [None]
  - RESPIRATORY ARREST [None]
  - RESPIRATORY DISORDER [None]
